FAERS Safety Report 6928572-3 (Version None)
Quarter: 2010Q3

REPORT INFORMATION
  Report Type: 
  Country: None (occurrence: None)
  Receive Date: 20100809
  Receipt Date: 20091007
  Transmission Date: 20110219
  Serious: No
  Sender: FDA-Public Use
  Company Number: US-000999

PATIENT
  Sex: Male

DRUGS (1)
  1. DEGARELIX 240 MG [Suspect]
     Dosage: (SUBCUTANEOUS)
     Route: 058
     Dates: start: 20091007, end: 20091007

REACTIONS (2)
  - ABDOMINAL PAIN [None]
  - BACK PAIN [None]
